FAERS Safety Report 24971153 (Version 1)
Quarter: 2025Q1

REPORT INFORMATION
  Report Type: Spontaneous
  Country: GB (occurrence: None)
  Receive Date: 20250214
  Receipt Date: 20250214
  Transmission Date: 20250408
  Serious: No
  Sender: ALEXION PHARMACEUTICALS
  Company Number: GB-AstraZeneca-2002GB02566

PATIENT

DRUGS (2)
  1. NEXIUM [Suspect]
     Active Substance: ESOMEPRAZOLE MAGNESIUM
     Indication: Barrett^s oesophagus
  2. BENDROFLUMETHIAZIDE [Concomitant]
     Active Substance: BENDROFLUMETHIAZIDE

REACTIONS (2)
  - Deafness [Recovering/Resolving]
  - Tinnitus [Not Recovered/Not Resolved]
